FAERS Safety Report 9753315 (Version 2)
Quarter: 2013Q4

REPORT INFORMATION
  Report Type: Spontaneous
  Country: CL (occurrence: CL)
  Receive Date: 20131213
  Receipt Date: 20131226
  Transmission Date: 20140711
  Serious: Yes (Other)
  Sender: FDA-Public Use
  Company Number: CL-PFIZER INC-2013353248

PATIENT
  Age: 83 Year
  Sex: Female

DRUGS (6)
  1. XALATAN [Suspect]
     Indication: GLAUCOMA
     Dosage: 1 DROP IN EACH EYE AT NIGHT
     Route: 047
     Dates: start: 2007
  2. ASPIRIN ^BAYER^ [Concomitant]
     Dosage: UNK
  3. ATORVASTATIN CALCIUM [Concomitant]
     Dosage: UNK
  4. CELEBRA [Concomitant]
     Indication: ARTHRITIS
     Dosage: UNK
  5. LOSARTAN [Concomitant]
     Dosage: UNK
  6. PARACETAMOL [Concomitant]
     Dosage: UNK

REACTIONS (1)
  - Cataract [Recovering/Resolving]
